FAERS Safety Report 7823515-2 (Version None)
Quarter: 2011Q4

REPORT INFORMATION
  Report Type: 
  Country: None (occurrence: None)
  Receive Date: 20111019
  Receipt Date: 20111014
  Transmission Date: 20120403
  Serious: Yes (Other)
  Sender: FDA-Public Use
  Company Number: CA-PFIZER INC-2011247707

PATIENT
  Age: 53 Year
  Sex: Male

DRUGS (5)
  1. COGENTIN [Concomitant]
     Dosage: UNK
  2. LOXAPINE [Interacting]
     Dosage: UNK
     Dates: start: 20110101
  3. CELEXA [Concomitant]
     Dosage: UNK
  4. ZIPRASIDONE HYDROCHLORIDE [Suspect]
     Dosage: UNK
     Dates: start: 20110101
  5. ZANTAC [Concomitant]
     Dosage: UNK

REACTIONS (2)
  - DRUG INTERACTION [None]
  - GUN SHOT WOUND [None]
